FAERS Safety Report 5208743-7 (Version None)
Quarter: 2007Q1

REPORT INFORMATION
  Report Type: 
  Country: None (occurrence: None)
  Receive Date: 20070116
  Receipt Date: 20070114
  Transmission Date: 20070707
  Serious: Yes (Other)
  Sender: FDA-Public Use
  Company Number: PHNR2007AU00444

PATIENT
  Sex: Female

DRUGS (5)
  1. LAMISIL [Suspect]
     Dosage: 250 MG DAILY
     Route: 048
     Dates: start: 20061224
  2. TRITACE [Concomitant]
     Dosage: 10 MG,
     Dates: start: 20051001
  3. SIMVAR [Concomitant]
     Dosage: 80 MG,
     Dates: start: 20030310
  4. DIABEX [Concomitant]
     Dosage: 500 MG, AT NIGHT
     Dates: start: 20050201
  5. ERYC [Concomitant]
     Dosage: 250 MG,
     Dates: start: 20061213

REACTIONS (1)
  - VAGINAL HAEMORRHAGE [None]
